FAERS Safety Report 5645501-3 (Version None)
Quarter: 2008Q1

REPORT INFORMATION
  Report Type: 
  Country: None (occurrence: None)
  Receive Date: 20080229
  Receipt Date: 20070320
  Transmission Date: 20080703
  Serious: No
  Sender: FDA-Public Use
  Company Number: US-BRISTOL-MYERS SQUIBB COMPANY-13720552

PATIENT
  Sex: Female
  Weight: 78 kg

DRUGS (3)
  1. TAXOL [Suspect]
     Indication: BREAST CANCER
  2. ADRIAMYCIN PFS [Concomitant]
  3. CYTOXAN [Concomitant]

REACTIONS (3)
  - HAIR GROWTH ABNORMAL [None]
  - HYPOAESTHESIA [None]
  - ONYCHOMADESIS [None]
